FAERS Safety Report 6017882-2 (Version None)
Quarter: 2008Q4

REPORT INFORMATION
  Report Type: 
  Country: None (occurrence: None)
  Receive Date: 20081223
  Receipt Date: 20081216
  Transmission Date: 20090506
  Serious: Yes (Death)
  Sender: FDA-Public Use
  Company Number: US-ABBOTT-08P-163-0493220-00

PATIENT
  Sex: Male
  Weight: 69.462 kg

DRUGS (2)
  1. DEPAKOTE [Suspect]
     Indication: CONVULSION
     Route: 048
     Dates: start: 20081113
  2. DEPAKOTE [Suspect]
     Indication: AFFECTIVE DISORDER

REACTIONS (1)
  - COMPLETED SUICIDE [None]
